FAERS Safety Report 25003478 (Version 5)
Quarter: 2025Q2

REPORT INFORMATION
  Report Type: Report from Study
  Country: BR (occurrence: BR)
  Receive Date: 20250224
  Receipt Date: 20250609
  Transmission Date: 20250717
  Serious: Yes (Disabling, Other)
  Sender: SANOFI AVENTIS
  Company Number: BR-SANOFI-02418053

PATIENT
  Age: 74 Year
  Sex: Female
  Weight: 64 kg

DRUGS (1)
  1. IMIGLUCERASE [Suspect]
     Active Substance: IMIGLUCERASE
     Indication: Gaucher^s disease
     Dosage: 5 DF, QOW
     Route: 042
     Dates: start: 19960123

REACTIONS (14)
  - Parkinson^s disease [Unknown]
  - Mobility decreased [Unknown]
  - Macular degeneration [Unknown]
  - Visual impairment [Unknown]
  - Diabetes mellitus [Unknown]
  - Memory impairment [Unknown]
  - Bone pain [Unknown]
  - Bone disorder [Unknown]
  - Anxiety [Unknown]
  - Platelet count decreased [Unknown]
  - Anaemia [Unknown]
  - Hypertension [Unknown]
  - Depression [Unknown]
  - Arthritis [Unknown]

NARRATIVE: CASE EVENT DATE: 20170101
